FAERS Safety Report 4763375-X (Version None)
Quarter: 2005Q3

REPORT INFORMATION
  Report Type: 
  Country: None (occurrence: None)
  Receive Date: 20050902
  Receipt Date: 20050822
  Transmission Date: 20060218
  Serious: Yes (Hospitalization)
  Sender: FDA-Public Use
  Company Number: 2005-131805-NL

PATIENT
  Age: 20 Year
  Sex: Female
  Weight: 72.7 kg

DRUGS (1)
  1. NUVARING [Suspect]
     Indication: CONTRACEPTION
     Dosage: VAGINAL
     Route: 067
     Dates: start: 20050810

REACTIONS (7)
  - DRUG INEFFECTIVE [None]
  - FOOD INTOLERANCE [None]
  - KIDNEY INFECTION [None]
  - MENORRHAGIA [None]
  - METRORRHAGIA [None]
  - NAUSEA [None]
  - VOMITING [None]
